FAERS Safety Report 9950103 (Version 1)
Quarter: 2014Q1

REPORT INFORMATION
  Report Type: Report from Study
  Country: US (occurrence: US)
  Receive Date: 20140304
  Receipt Date: 20140304
  Transmission Date: 20141002
  Serious: No
  Sender: FDA-Public Use
  Company Number: US-ABBVIE-13P-163-1069526-00

PATIENT
  Age: 47 Year
  Sex: Female

DRUGS (4)
  1. HUMIRA [Suspect]
     Indication: PSORIASIS
     Dates: end: 2012
  2. LEXAPRO [Concomitant]
     Indication: DEPRESSION
  3. PRAVASTATIN [Concomitant]
     Indication: BLOOD CHOLESTEROL
  4. METOPROLOL [Concomitant]
     Indication: BLOOD PRESSURE

REACTIONS (2)
  - Psoriasis [Unknown]
  - Drug ineffective [Unknown]
